FAERS Safety Report 26179438 (Version 1)
Quarter: 2025Q4

REPORT INFORMATION
  Report Type: Spontaneous
  Country: EU (occurrence: EU)
  Receive Date: 20251219
  Receipt Date: 20251219
  Transmission Date: 20260117
  Serious: Yes (Hospitalization)
  Sender: AUROBINDO
  Company Number: EU-AFSSAPS-MA2025001689

PATIENT
  Age: 70 Year
  Sex: Female

DRUGS (3)
  1. AMIODARONE [Suspect]
     Active Substance: AMIODARONE
     Indication: Atrial fibrillation
     Dosage: 200 MILLIGRAM, ONCE A DAY
     Route: 061
     Dates: start: 20251101, end: 20251112
  2. FUROSEMIDE [Suspect]
     Active Substance: FUROSEMIDE
     Indication: Atrial fibrillation
     Dosage: 80 MILLIGRAM, ONCE A DAY
     Route: 061
     Dates: start: 20251101, end: 20251112
  3. BISOPROLOL FUMARATE [Suspect]
     Active Substance: BISOPROLOL FUMARATE
     Indication: Atrial fibrillation
     Dosage: 2.5 MILLIGRAM, TWO TIMES A DAY
     Route: 061
     Dates: start: 20251101, end: 20251112

REACTIONS (2)
  - Erythema [Unknown]
  - Palmar erythema [Unknown]

NARRATIVE: CASE EVENT DATE: 20251109
